FAERS Safety Report 24047914 (Version 1)
Quarter: 2024Q3

REPORT INFORMATION
  Report Type: Spontaneous
  Country: CN (occurrence: CN)
  Receive Date: 20240703
  Receipt Date: 20240703
  Transmission Date: 20241016
  Serious: Yes (Other)
  Sender: EISAI
  Company Number: CN-Eisai-EC-2024-169138

PATIENT
  Age: 54 Year
  Sex: Female
  Weight: 80 kg

DRUGS (2)
  1. ERIBULIN [Suspect]
     Active Substance: ERIBULIN
     Indication: Breast cancer metastatic
     Route: 042
     Dates: start: 20240614
  2. CAPECITABINE [Suspect]
     Active Substance: CAPECITABINE
     Indication: Breast cancer metastatic
     Route: 048
     Dates: start: 20240614, end: 20240618

REACTIONS (1)
  - Myelosuppression [Recovered/Resolved]

NARRATIVE: CASE EVENT DATE: 20240618
